FAERS Safety Report 8541367-2 (Version None)
Quarter: 2012Q3

REPORT INFORMATION
  Report Type: 
  Country: None (occurrence: None)
  Receive Date: 20120726
  Receipt Date: 20111026
  Transmission Date: 20120928
  Serious: No
  Sender: FDA-Public Use
  Company Number: US-ASTRAZENECA-2011SE55550

PATIENT
  Age: 12975 Day
  Sex: Female

DRUGS (2)
  1. SEROQUEL [Suspect]
     Indication: BIPOLAR DISORDER
     Route: 048
  2. SEROQUEL [Suspect]
     Route: 048

REACTIONS (3)
  - ADVERSE DRUG REACTION [None]
  - MUSCLE TWITCHING [None]
  - SLEEP DISORDER DUE TO A GENERAL MEDICAL CONDITION [None]
